FAERS Safety Report 17312429 (Version 1)
Quarter: 2020Q1

REPORT INFORMATION
  Report Type: Spontaneous
  Country: US (occurrence: US)
  Receive Date: 20200123
  Receipt Date: 20200123
  Transmission Date: 20200409
  Serious: No
  Sender: FDA-Public Use
  Company Number: US-NOVOPROD-673384

PATIENT
  Age: 31 Year
  Sex: Female

DRUGS (1)
  1. OZEMPIC [Suspect]
     Active Substance: SEMAGLUTIDE
     Indication: INSULIN RESISTANCE
     Dosage: 0.5 MG, QW
     Route: 058
     Dates: start: 201901, end: 201906

REACTIONS (10)
  - Off label use [Recovered/Resolved]
  - Injection site pain [Recovered/Resolved]
  - Liquid product physical issue [Unknown]
  - Fear of injection [Not Recovered/Not Resolved]
  - Mental impairment [Unknown]
  - Condition aggravated [Recovering/Resolving]
  - Gluten sensitivity [Recovering/Resolving]
  - Injection site reaction [Recovered/Resolved]
  - Device malfunction [Unknown]
  - Inappropriate schedule of product administration [Unknown]

NARRATIVE: CASE EVENT DATE: 2019
